FAERS Safety Report 16265835 (Version 2)
Quarter: 2019Q3

REPORT INFORMATION
  Report Type: Spontaneous
  Country: JP (occurrence: JP)
  Receive Date: 20190502
  Receipt Date: 20190705
  Transmission Date: 20191004
  Serious: Yes (Hospitalization)
  Sender: FDA-Public Use
  Company Number: JP-ASTRAZENECA-2019SE27668

PATIENT
  Age: 69 Year
  Sex: Male
  Weight: 62 kg

DRUGS (6)
  1. CLOSTRIDIUM BUTYRICUM [Concomitant]
     Active Substance: CLOSTRIDIUM BUTYRICUM SPORES STRAIN M-55
     Dosage: AFTER EVERY MEAL
     Route: 048
  2. TRANSAMIN [Concomitant]
     Active Substance: TRANEXAMIC ACID
     Dosage: AFTER EVERY MEAL
     Route: 048
  3. SOLIFENACIN [Concomitant]
     Active Substance: SOLIFENACIN
     Dosage: AFTER BREAKFAST
     Route: 048
  4. IMFINZI [Suspect]
     Active Substance: DURVALUMAB
     Indication: NON-SMALL CELL LUNG CANCER
     Route: 041
     Dates: start: 20190110, end: 20190125
  5. HUSTAZOL [Concomitant]
     Dosage: AFTER EVERY MEAL
     Route: 048
  6. PITAVASTATIN CALCIUM [Concomitant]
     Active Substance: PITAVASTATIN CALCIUM
     Dosage: AFTER BREAKFAST
     Route: 048

REACTIONS (1)
  - Lung disorder [Recovering/Resolving]

NARRATIVE: CASE EVENT DATE: 20190213
